FAERS Safety Report 10034665 (Version 2)
Quarter: 2014Q2

REPORT INFORMATION
  Report Type: Spontaneous
  Country: US (occurrence: US)
  Receive Date: 20140325
  Receipt Date: 20140407
  Transmission Date: 20141212
  Serious: Yes (Hospitalization, Other)
  Sender: FDA-Public Use
  Company Number: US-ASTELLAS-2014US002876

PATIENT
  Age: 85 Year
  Sex: Male
  Weight: 54 kg

DRUGS (5)
  1. XTANDI [Suspect]
     Indication: PROSTATE CANCER
     Dosage: 160 MG, UID/QD
     Route: 048
     Dates: start: 20130926, end: 201312
  2. XTANDI [Suspect]
     Dosage: UNK
     Route: 048
  3. PLAVIX [Suspect]
     Indication: PRODUCT USED FOR UNKNOWN INDICATION
     Dosage: 75 MG, UID/QD
     Route: 048
  4. XGEVA [Concomitant]
     Indication: PROSTATE CANCER
     Dosage: UNK
     Route: 065
     Dates: start: 201303
  5. LUPRON [Concomitant]
     Indication: PROSTATE CANCER
     Dosage: UNK
     Route: 065
     Dates: start: 201303

REACTIONS (22)
  - Hyperkalaemia [Unknown]
  - Cardiopulmonary failure [Unknown]
  - Diarrhoea haemorrhagic [Unknown]
  - Post procedural haemorrhage [Unknown]
  - Renal failure chronic [Unknown]
  - Coronary artery disease [Unknown]
  - Anaemia postoperative [Unknown]
  - Gastrointestinal tube insertion [Unknown]
  - Platelet dysfunction [Unknown]
  - Metastases to lung [Unknown]
  - Upper respiratory tract infection [Unknown]
  - Hypertension [Unknown]
  - Hyperlipidaemia [Unknown]
  - Anaemia of chronic disease [Unknown]
  - Arrhythmia [Unknown]
  - Incarcerated inguinal hernia [Unknown]
  - Weight gain poor [Unknown]
  - Ecchymosis [Unknown]
  - Fatigue [Unknown]
  - Gynaecomastia [Unknown]
  - Sleep disorder [Unknown]
  - Anxiety [Unknown]
